FAERS Safety Report 21136136 (Version 1)
Quarter: 2022Q3

REPORT INFORMATION
  Report Type: Spontaneous
  Country: IL (occurrence: None)
  Receive Date: 20220727
  Receipt Date: 20220727
  Transmission Date: 20221027
  Serious: Yes (Other)
  Sender: FDA-Public Use
  Company Number: IL-ROCHE-3145953

PATIENT
  Age: 67 Year
  Sex: Male

DRUGS (9)
  1. XELODA [Suspect]
     Active Substance: CAPECITABINE
     Indication: Product used for unknown indication
     Route: 065
  2. AMLODIPINE MALEATE [Concomitant]
     Active Substance: AMLODIPINE MALEATE
     Route: 048
  3. LOTAN (ISRAEL) [Concomitant]
     Route: 048
  4. ASPIRIN [Concomitant]
     Active Substance: ASPIRIN
     Route: 048
  5. OZEMPIC [Concomitant]
     Active Substance: SEMAGLUTIDE
     Route: 058
  6. STATOR (ISRAEL) [Concomitant]
     Route: 048
  7. TESTOSTERONE [Concomitant]
     Active Substance: TESTOSTERONE
     Route: 062
  8. TRULICITY [Concomitant]
     Active Substance: DULAGLUTIDE
     Route: 058
  9. XIGDUO XR [Concomitant]
     Active Substance: DAPAGLIFLOZIN PROPANEDIOL\METFORMIN HYDROCHLORIDE
     Dosage: 5MG/500MG
     Route: 048

REACTIONS (3)
  - Gait disturbance [Unknown]
  - Peritoneal disorder [Unknown]
  - Rash [Unknown]

NARRATIVE: CASE EVENT DATE: 20220501
